FAERS Safety Report 10098844 (Version 1)
Quarter: 2014Q2

REPORT INFORMATION
  Report Type: Spontaneous
  Country: GB (occurrence: GB)
  Receive Date: 20140423
  Receipt Date: 20140423
  Transmission Date: 20141212
  Serious: Yes (Life-Threatening, Other)
  Sender: FDA-Public Use
  Company Number: GB-TEVA-476463ISR

PATIENT
  Age: 50 Year
  Sex: Male
  Weight: 90.7 kg

DRUGS (5)
  1. LOPERAMIDE [Suspect]
     Indication: IRRITABLE BOWEL SYNDROME
     Dosage: TWO TO START.
     Route: 048
     Dates: start: 201312, end: 201312
  2. DOMPERIDONE [Concomitant]
     Indication: ABDOMINAL DISCOMFORT
     Dosage: 2 WITH MEALS WHEN REQUIRED. STARTED ABOUT 2010. STILL TAKING.
     Route: 048
     Dates: start: 2010
  3. MIRTAZAPINE [Concomitant]
     Indication: ANXIETY
     Dosage: 30 MILLIGRAM DAILY; ONE AT NIGHT. STARTED ABOUT 2010. STILL TAKING.
     Route: 048
     Dates: start: 2010
  4. PROPRANOLOL [Concomitant]
     Indication: ANXIETY
     Dosage: 80 MILLIGRAM DAILY; STARTED ABOUT 2010. STILL TAKING.
     Route: 048
     Dates: start: 2010
  5. LANSOPRAZOLE [Concomitant]
     Indication: HIATUS HERNIA
     Dosage: 30 MILLIGRAM DAILY; STARTED ABOUT 2010. STILL TAKING.
     Route: 048
     Dates: start: 2010

REACTIONS (1)
  - Anxiety [Recovered/Resolved]
